FAERS Safety Report 19490640 (Version 1)
Quarter: 2021Q3

REPORT INFORMATION
  Report Type: Spontaneous
  Country: MX (occurrence: MX)
  Receive Date: 20210705
  Receipt Date: 20210705
  Transmission Date: 20211014
  Serious: Yes (Death, Hospitalization, Other)
  Sender: FDA-Public Use
  Company Number: MX-BION-009900

PATIENT
  Age: 43 Year
  Sex: Male

DRUGS (9)
  1. AZITHROMYCIN ANHYDROUS. [Suspect]
     Active Substance: AZITHROMYCIN ANHYDROUS
     Indication: COVID-19
     Dosage: 500 MG DAILY ON DAY 1, THEN 250 MG DAILY ON DAYS 2?5
  2. CHLOROQUINE. [Suspect]
     Active Substance: CHLOROQUINE
     Indication: COVID-19
     Dosage: 500 MG TWICE ON DAY 1, THEN 500 MG DAILY ON DAYS 2?5
  3. CALCITRIOL. [Concomitant]
     Active Substance: CALCITRIOL
  4. PREDNISONE. [Concomitant]
     Active Substance: PREDNISONE
  5. NIFEDIPINE. [Concomitant]
     Active Substance: NIFEDIPINE
     Dosage: TWICE DAILY,
  6. MYCOPHENOLATE MOFETIL/MYCOPHENOLATE SODIUM/MYCOPHENOLIC ACID [Concomitant]
     Active Substance: MYCOPHENOLIC ACID
     Dosage: TWICE DAILY
  7. TACROLIMUS. [Suspect]
     Active Substance: TACROLIMUS
     Indication: IMMUNOSUPPRESSANT DRUG THERAPY
     Dosage: TWICE DAILY
  8. CALCIUM CARBONATE. [Concomitant]
     Active Substance: CALCIUM CARBONATE
  9. METOPROLOL. [Concomitant]
     Active Substance: METOPROLOL
     Dosage: TWICE DAILY

REACTIONS (4)
  - Product use in unapproved indication [Not Recovered/Not Resolved]
  - Cardiac arrest [Fatal]
  - Atrial fibrillation [Unknown]
  - Ventricular tachycardia [Unknown]
